FAERS Safety Report 5936409-4 (Version None)
Quarter: 2008Q4

REPORT INFORMATION
  Report Type: 
  Country: None (occurrence: None)
  Receive Date: 20081020
  Receipt Date: 20080904
  Transmission Date: 20090506
  Serious: Yes (Other)
  Sender: FDA-Public Use
  Company Number: US-WYE-H05921608

PATIENT
  Age: 51 Year
  Sex: Male
  Weight: 81.72 kg

DRUGS (2)
  1. ADVIL PM [Suspect]
     Indication: MYALGIA
     Dosage: 2 CAPLETS 1X PER 1 DAY, ORAL
     Route: 048
     Dates: start: 20080701, end: 20080902
  2. ADVIL PM [Suspect]
     Indication: PAIN
     Dosage: 2 CAPLETS 1X PER 1 DAY, ORAL
     Route: 048
     Dates: start: 20080701, end: 20080902

REACTIONS (1)
  - BACK PAIN [None]
